FAERS Safety Report 7762740-6 (Version None)
Quarter: 2011Q3

REPORT INFORMATION
  Report Type: 
  Country: None (occurrence: None)
  Receive Date: 20110920
  Receipt Date: 20110919
  Transmission Date: 20111222
  Serious: Yes (Other)
  Sender: FDA-Public Use
  Company Number: US-PFIZER INC-2011221962

PATIENT
  Sex: Female
  Weight: 80.726 kg

DRUGS (6)
  1. CHANTIX [Suspect]
     Indication: SMOKING CESSATION THERAPY
     Dosage: 0.5 MG, 1X/DAY
     Route: 048
     Dates: start: 20110301, end: 20110101
  2. NEXIUM [Concomitant]
     Indication: GASTROOESOPHAGEAL REFLUX DISEASE
     Dosage: UNK
  3. FLUTICASONE [Concomitant]
     Indication: DYSPNOEA
     Dosage: UNK
  4. SPIRIVA [Concomitant]
     Indication: DYSPNOEA
     Dosage: UNK
  5. CHANTIX [Suspect]
     Dosage: 1 MG, 2X/DAY
     Route: 048
     Dates: start: 20110101, end: 20110801
  6. REQUIP [Concomitant]
     Indication: RESTLESS LEGS SYNDROME
     Dosage: UNK

REACTIONS (9)
  - DYSPNOEA [None]
  - WEIGHT INCREASED [None]
  - BACK PAIN [None]
  - GASTROOESOPHAGEAL REFLUX DISEASE [None]
  - SWOLLEN TONGUE [None]
  - CHEST DISCOMFORT [None]
  - RESTLESS LEGS SYNDROME [None]
  - COUGH [None]
  - DYSGEUSIA [None]
